FAERS Safety Report 8571823-2 (Version None)
Quarter: 2012Q3

REPORT INFORMATION
  Report Type: 
  Country: None (occurrence: None)
  Receive Date: 20120806
  Receipt Date: 20120801
  Transmission Date: 20120928
  Serious: Yes (Death, Life-Threatening)
  Sender: FDA-Public Use
  Company Number: GXKR2012DE002467

PATIENT
  Age: 37 Year
  Sex: Female
  Weight: 71 kg

DRUGS (4)
  1. METHERGINE [Suspect]
     Route: 042
  2. OXYTOCIN [Suspect]
     Indication: UTERINE ATONY
     Route: 042
  3. OXYTOCIN [Suspect]
     Route: 042
  4. NALADOR [Suspect]
     Indication: UTERINE ATONY
     Route: 042

REACTIONS (3)
  - INTRA-ABDOMINAL HAEMORRHAGE [None]
  - DISSEMINATED INTRAVASCULAR COAGULATION [None]
  - DRUG INEFFECTIVE [None]
